FAERS Safety Report 9478698 (Version 3)
Quarter: 2013Q4

REPORT INFORMATION
  Report Type: Spontaneous
  Country: IT (occurrence: IT)
  Receive Date: 20130827
  Receipt Date: 20131015
  Transmission Date: 20140711
  Serious: Yes (Hospitalization)
  Sender: FDA-Public Use
  Company Number: IT-ROCHE-1266552

PATIENT
  Age: 40 Year
  Sex: Male

DRUGS (1)
  1. RIVOTRIL [Suspect]
     Indication: PRODUCT USED FOR UNKNOWN INDICATION
     Dosage: TABLET 2MG
     Route: 048
     Dates: start: 20120709, end: 20130708

REACTIONS (2)
  - Presyncope [Recovering/Resolving]
  - Chest pain [Recovering/Resolving]
